FAERS Safety Report 6329546-6 (Version None)
Quarter: 2009Q3

REPORT INFORMATION
  Report Type: 
  Country: None (occurrence: None)
  Receive Date: 20090818
  Receipt Date: 20090430
  Transmission Date: 20100115
  Serious: No
  Sender: FDA-Public Use
  Company Number: WAES 0904USA00464

PATIENT
  Age: 49 Year
  Sex: Female

DRUGS (7)
  1. JANUVIA [Suspect]
     Indication: DIABETES MELLITUS
     Dosage: 100 MG/DAILY/PO
     Route: 048
     Dates: start: 20090402
  2. LASIX [Concomitant]
  3. SINGULAIR [Concomitant]
  4. FOLIC ACID [Concomitant]
  5. GLIMEPIRIDE [Concomitant]
  6. METHOTREXATE [Concomitant]
  7. POTASSIUM CHLORIDE [Concomitant]

REACTIONS (3)
  - DYSPNOEA [None]
  - NEOPLASM [None]
  - UNEVALUABLE EVENT [None]
